FAERS Safety Report 4577656-6 (Version None)
Quarter: 2005Q1

REPORT INFORMATION
  Report Type: 
  Country: None (occurrence: None)
  Receive Date: 20050210
  Receipt Date: 20041001
  Transmission Date: 20050727
  Serious: Yes (Life-Threatening, Hospitalization)
  Sender: FDA-Public Use
  Company Number: US-MERCK-0410USA00163

PATIENT
  Age: 57 Year
  Sex: Female
  Weight: 75 kg

DRUGS (10)
  1. VIOXX [Suspect]
     Indication: OSTEOARTHRITIS
     Route: 048
     Dates: start: 20001005, end: 20040501
  2. VIOXX [Suspect]
     Route: 048
     Dates: start: 20040505, end: 20040930
  3. VIOXX [Suspect]
     Route: 048
     Dates: start: 20000331
  4. VIOXX [Suspect]
     Indication: PAIN
     Route: 048
     Dates: start: 20001005, end: 20040501
  5. VIOXX [Suspect]
     Route: 048
     Dates: start: 20040505, end: 20040930
  6. VIOXX [Suspect]
     Route: 048
     Dates: start: 20000331
  7. NEXIUM [Concomitant]
     Route: 065
  8. ASPIRIN [Concomitant]
     Route: 065
  9. [THERAPY UNSPECIFIED] [Concomitant]
     Route: 065
  10. CALCIUM (UNSPECIFIED) [Concomitant]
     Route: 065

REACTIONS (8)
  - AMNESIA [None]
  - CARDIAC DISORDER [None]
  - CHEST PAIN [None]
  - CONTUSION [None]
  - EATING DISORDER [None]
  - MYOCARDIAL INFARCTION [None]
  - STRESS [None]
  - WEIGHT DECREASED [None]
